FAERS Safety Report 23812443 (Version 1)
Quarter: 2024Q2

REPORT INFORMATION
  Report Type: Spontaneous
  Country: US (occurrence: US)
  Receive Date: 20240503
  Receipt Date: 20240503
  Transmission Date: 20240716
  Serious: No
  Sender: FDA-Public Use
  Company Number: US-AMGEN-USASP2024084345

PATIENT

DRUGS (3)
  1. BEVACIZUMAB [Suspect]
     Active Substance: BEVACIZUMAB
     Indication: Anal squamous cell carcinoma
     Dosage: UNK (92 CYCLES)
     Route: 065
  2. ATEZOLIZUMAB [Concomitant]
     Active Substance: ATEZOLIZUMAB
     Indication: Anal squamous cell carcinoma
     Dosage: UNK (92 CYCLES)
     Route: 065
  3. SQZ PBMC HPV [Concomitant]
     Indication: Papilloma viral infection
     Route: 065

REACTIONS (1)
  - Off label use [Unknown]
